FAERS Safety Report 10146414 (Version 1)
Quarter: 2014Q2

REPORT INFORMATION
  Report Type: Report from Study
  Country: DE (occurrence: DE)
  Receive Date: 20140501
  Receipt Date: 20140501
  Transmission Date: 20141212
  Serious: Yes (Hospitalization)
  Sender: FDA-Public Use
  Company Number: DE-ROCHE-499805

PATIENT
  Age: 74 Year
  Sex: Male
  Weight: 70 kg

DRUGS (5)
  1. BEVACIZUMAB [Suspect]
     Indication: RECTAL CANCER
     Route: 042
     Dates: start: 200703, end: 200704
  2. 5-FU [Suspect]
     Indication: RECTAL CANCER
     Route: 042
  3. IRINOTECAN [Suspect]
     Indication: RECTAL CANCER
     Route: 042
  4. CALCIUM FOLINATE [Concomitant]
     Indication: RECTAL CANCER
     Dosage: DRUG REPORTED AS FOLINATE.
     Route: 042
  5. NOVAMINSULFON [Concomitant]
     Dosage: DOSAGE REGIMEN REPORTED AS 40 DROP X 4.
     Route: 065

REACTIONS (2)
  - Gastroenteritis [Recovered/Resolved]
  - Anaemia of malignant disease [Recovered/Resolved]
